FAERS Safety Report 5233480-2 (Version None)
Quarter: 2007Q1

REPORT INFORMATION
  Report Type: 
  Country: None (occurrence: None)
  Receive Date: 20070208
  Receipt Date: 20070129
  Transmission Date: 20070707
  Serious: Yes (Hospitalization)
  Sender: FDA-Public Use
  Company Number: DEWYE394129JAN07

PATIENT
  Sex: Female
  Weight: 80 kg

DRUGS (2)
  1. VENLAFAXINE HCL [Suspect]
     Dosage: UNKNOWN
     Route: 048
  2. PIPAMPERONE [Suspect]
     Dosage: UNKNOWN
     Route: 048

REACTIONS (3)
  - APNOEA [None]
  - HEPATIC FAILURE [None]
  - LOSS OF CONSCIOUSNESS [None]
